FAERS Safety Report 16258214 (Version 2)
Quarter: 2019Q2

REPORT INFORMATION
  Report Type: Spontaneous
  Country: US (occurrence: US)
  Receive Date: 20190430
  Receipt Date: 20190510
  Transmission Date: 20190711
  Serious: Yes (Other)
  Sender: FDA-Public Use
  Company Number: US-ASTRAZENECA-2019SE09299

PATIENT

DRUGS (14)
  1. LASIX [Concomitant]
     Active Substance: FUROSEMIDE
  2. MELATONIN [Concomitant]
     Active Substance: MELATONIN
  3. HYDROCODONE-ACETAMINOPHEN [Concomitant]
     Active Substance: ACETAMINOPHEN\HYDROCODONE
  4. VITAMIN D [Concomitant]
     Active Substance: VITAMIN D NOS
  5. LEVOTHYROXINE. [Concomitant]
     Active Substance: LEVOTHYROXINE
  6. PRILOSEC [Suspect]
     Active Substance: OMEPRAZOLE MAGNESIUM
     Route: 048
  7. HYDROXYZINE [Concomitant]
     Active Substance: HYDROXYZINE HYDROCHLORIDE
  8. CALCITRIOL. [Concomitant]
     Active Substance: CALCITRIOL
  9. ATORVASTATIN [Concomitant]
     Active Substance: ATORVASTATIN
  10. NEXIUM [Suspect]
     Active Substance: ESOMEPRAZOLE MAGNESIUM
     Route: 048
  11. LYRICA [Concomitant]
     Active Substance: PREGABALIN
  12. ALLOPURINOL. [Concomitant]
     Active Substance: ALLOPURINOL
  13. HYDROCHLOROTHIAZIDE. [Concomitant]
     Active Substance: HYDROCHLOROTHIAZIDE
  14. CLONIDINE. [Concomitant]
     Active Substance: CLONIDINE

REACTIONS (5)
  - Renal failure [Unknown]
  - Renal injury [Unknown]
  - End stage renal disease [Unknown]
  - Chronic kidney disease [Unknown]
  - Rebound acid hypersecretion [Unknown]
